FAERS Safety Report 18936159 (Version 2)
Quarter: 2021Q3

REPORT INFORMATION
  Report Type: Spontaneous
  Country: DE (occurrence: DE)
  Receive Date: 20210224
  Receipt Date: 20210712
  Transmission Date: 20211014
  Serious: Yes (Hospitalization, Other)
  Sender: FDA-Public Use
  Company Number: DE-TEVA-2021-DE-1882977

PATIENT
  Age: 34 Year
  Sex: Female
  Weight: 53 kg

DRUGS (19)
  1. FERRO SANOL [Concomitant]
     Active Substance: FERROUS GLYCINE SULFATE
     Dosage: 2 DOSAGE FORMS DAILY; 1?0?1
  2. KALYDECO [Interacting]
     Active Substance: IVACAFTOR
     Dosage: 150 MILLIGRAM DAILY; 1 TABLET IN THE EVENING
     Dates: start: 20200929
  3. BERODUAL [Concomitant]
     Active Substance: FENOTEROL HYDROBROMIDE\IPRATROPIUM BROMIDE
     Dosage: 2?3 STROKES IF NECESSARY
  4. KAFTRIO 75 MG/50 MG/100 MG [Interacting]
     Active Substance: ELEXACAFTOR\IVACAFTOR\TEZACAFTOR
     Dosage: 2 TABLETS IN THE MORNING?FOR ACTIVE INGREDIENT IVACAFTOR THE STRENGTH IS 75 MILLIGRAM .?FOR ACTIVE I
     Dates: start: 20200929
  5. KAFTRIO 75 MG/50 MG/100 MG [Interacting]
     Active Substance: ELEXACAFTOR\IVACAFTOR\TEZACAFTOR
     Dosage: FOR ACTIVE INGREDIENT IVACAFTOR THE STRENGTH IS 75 MILLIGRAM .?FOR ACTIVE INGREDIENT ELEXACAFTOR TH
     Dates: start: 202012
  6. KALYDECO [Interacting]
     Active Substance: IVACAFTOR
     Dosage: 150MILLIGRAM
     Dates: start: 202012
  7. NACL [Concomitant]
     Active Substance: SODIUM CHLORIDE
     Dosage: 2 DOSAGE FORMS DAILY; 0.9 ? 6 % 1?0?1
  8. KALYDECO [Interacting]
     Active Substance: IVACAFTOR
     Indication: CYSTIC FIBROSIS
     Dosage: 150MILLIGRAM
     Dates: start: 20201210, end: 202012
  9. SAUERSTOFF [Concomitant]
     Active Substance: OXYGEN
     Dosage: 2 LITERS DAILY;   AT NIGHT, DURING THE DAY ONLY IN THE EVENT OF INFECTION AND HEAT
  10. ACC 600 MG [Concomitant]
  11. KALYDECO [Interacting]
     Active Substance: IVACAFTOR
     Dosage: 150MILLIGRAM
  12. COTRIM FORTE 960 MG [Interacting]
     Active Substance: SULFAMETHOXAZOLE\TRIMETHOPRIM
     Indication: CYSTIC FIBROSIS
  13. KAFTRIO 75 MG/50 MG/100 MG [Interacting]
     Active Substance: ELEXACAFTOR\IVACAFTOR\TEZACAFTOR
     Indication: CYSTIC FIBROSIS
     Dosage: FOR ACTIVE INGREDIENT IVACAFTOR THE STRENGTH IS 75 MILLIGRAM .?FOR ACTIVE INGREDIENT ELEXACAFTOR TH
     Dates: start: 20201210, end: 202012
  14. KAFTRIO 75 MG/50 MG/100 MG [Interacting]
     Active Substance: ELEXACAFTOR\IVACAFTOR\TEZACAFTOR
     Dosage: FOR ACTIVE INGREDIENT IVACAFTOR THE STRENGTH IS 75 MILLIGRAM .?FOR ACTIVE INGREDIENT ELEXACAFTOR TH
     Dates: start: 202012, end: 202012
  15. KREON 40000 [Concomitant]
     Active Substance: PANCRELIPASE
     Dosage: MAX 8 / DAY
  16. NOVORAPID [Concomitant]
     Active Substance: INSULIN ASPART
     Dosage: 5?8?0?0? IE AND AS NEEDED
  17. COTRIM FORTE 960 MG [Suspect]
     Active Substance: SULFAMETHOXAZOLE\TRIMETHOPRIM
     Indication: C-REACTIVE PROTEIN INCREASED
     Dosage: 2DOSAGEFORM
     Route: 048
     Dates: start: 20201007, end: 20201011
  18. VIANI 20/250 [Concomitant]
     Dosage: 2 DOSAGE FORMS DAILY; 1?0?1
  19. URSOFALK 500 MG [Concomitant]
     Dosage: 3 DOSAGE FORMS DAILY; 1?1?1

REACTIONS (9)
  - Oxygen saturation decreased [Recovered/Resolved]
  - Bronchial secretion retention [Recovered/Resolved]
  - Secretion discharge [Recovered/Resolved]
  - Condition aggravated [Unknown]
  - Drug interaction [Unknown]
  - Respiratory tract haemorrhage [Recovered/Resolved]
  - Sputum increased [Recovered/Resolved]
  - Heart rate increased [Recovered/Resolved]
  - Accidental overdose [Unknown]

NARRATIVE: CASE EVENT DATE: 202010
